FAERS Safety Report 9909595 (Version 1)
Quarter: 2014Q1

REPORT INFORMATION
  Report Type: Spontaneous
  Country: NL (occurrence: NL)
  Receive Date: 20140219
  Receipt Date: 20140219
  Transmission Date: 20141002
  Serious: Yes (Death, Other)
  Sender: FDA-Public Use
  Company Number: NL-PFIZER INC-2014045666

PATIENT
  Age: 67 Year
  Sex: Male
  Weight: 79 kg

DRUGS (8)
  1. PIPERACILLIN/TAZOBACTAM [Suspect]
     Dosage: UNK
  2. ETOPOSIDE [Suspect]
     Indication: ENTEROPATHY-ASSOCIATED T-CELL LYMPHOMA
     Dosage: UNK
     Dates: start: 20131126, end: 20131130
  3. IFOSFAMIDE [Suspect]
     Indication: ENTEROPATHY-ASSOCIATED T-CELL LYMPHOMA
     Dosage: UNK
     Dates: start: 20131126, end: 20131130
  4. METHOTREXAT [Suspect]
     Indication: ENTEROPATHY-ASSOCIATED T-CELL LYMPHOMA
     Dosage: UNK
     Dates: start: 20131126, end: 20131130
  5. PANTOZOL [Concomitant]
     Dosage: 20 MG, UNK
  6. FUNGIZONE [Concomitant]
  7. VALACICLOVIR [Concomitant]
  8. CIPROXIN [Concomitant]
     Dosage: UNK
     Dates: start: 20131126, end: 20131130

REACTIONS (2)
  - Hepatic failure [Fatal]
  - Neurotoxicity [Recovered/Resolved]
